FAERS Safety Report 25588786 (Version 1)
Quarter: 2025Q3

REPORT INFORMATION
  Report Type: Spontaneous
  Country: US (occurrence: US)
  Receive Date: 20250722
  Receipt Date: 20250722
  Transmission Date: 20251020
  Serious: No
  Sender: KINDEVA DRUG DELIVERY L.P.
  Company Number: US-Kindeva Drug Delivery L.P.-2180937

PATIENT
  Age: 66 Year
  Sex: Female

DRUGS (2)
  1. ALBUTEROL SULFATE [Suspect]
     Active Substance: ALBUTEROL SULFATE
     Indication: Asthma
     Dates: start: 20250410
  2. AIRSUPRA [Concomitant]
     Active Substance: ALBUTEROL SULFATE\BUDESONIDE

REACTIONS (4)
  - Malaise [Recovered/Resolved]
  - Product quality issue [Unknown]
  - Drug delivery system malfunction [Unknown]
  - Dyspnoea [Recovered/Resolved]
